FAERS Safety Report 7150635-0 (Version None)
Quarter: 2010Q4

REPORT INFORMATION
  Report Type: 
  Country: None (occurrence: None)
  Receive Date: 20101210
  Receipt Date: 20101206
  Transmission Date: 20110411
  Serious: Yes (Other)
  Sender: FDA-Public Use
  Company Number: BE-AMGEN-KDL428602

PATIENT

DRUGS (9)
  1. NPLATE [Suspect]
     Indication: IDIOPATHIC THROMBOCYTOPENIC PURPURA
     Dosage: 2 A?G, UNK
     Dates: start: 20100101, end: 20100706
  2. NPLATE [Suspect]
     Dosage: 55 A?G, UNK
     Dates: start: 20100803
  3. NPLATE [Suspect]
     Dosage: 55 A?G, UNK
     Dates: start: 20100903
  4. NPLATE [Suspect]
     Dosage: 27 A?G, UNK
     Dates: start: 20101005
  5. FUROSEMIDE [Concomitant]
     Dosage: UNK UNK, UNK
     Route: 048
  6. METHYLPREDNISOLONE [Concomitant]
     Dosage: UNK UNK, UNK
     Route: 048
  7. OMEPRAZOLE [Concomitant]
     Dosage: UNK UNK, UNK
     Route: 048
  8. SELOZOK [Concomitant]
     Dosage: UNK UNK, UNK
     Route: 048
  9. SIMVASTATIN [Concomitant]
     Dosage: UNK UNK, UNK
     Route: 048

REACTIONS (2)
  - HEPATIC FUNCTION ABNORMAL [None]
  - PLATELET COUNT INCREASED [None]
